FAERS Safety Report 25578075 (Version 1)
Quarter: 2025Q3

REPORT INFORMATION
  Report Type: Spontaneous
  Country: US (occurrence: US)
  Receive Date: 20250718
  Receipt Date: 20250718
  Transmission Date: 20251021
  Serious: No
  Sender: PFIZER
  Company Number: US-PFIZER INC-202500142623

PATIENT
  Age: 39 Year
  Sex: Female

DRUGS (2)
  1. VELSIPITY [Interacting]
     Active Substance: ETRASIMOD ARGININE
     Dates: start: 2025
  2. FLUCONAZOLE [Interacting]
     Active Substance: FLUCONAZOLE
     Dates: start: 2025, end: 2025

REACTIONS (2)
  - Labelled drug-drug interaction medication error [Unknown]
  - Feeling abnormal [Unknown]

NARRATIVE: CASE EVENT DATE: 20250101
